FAERS Safety Report 11291555 (Version 6)
Quarter: 2021Q3

REPORT INFORMATION
  Report Type: Report from Study
  Country: None (occurrence: BR)
  Receive Date: 20150722
  Receipt Date: 20210712
  Transmission Date: 20211014
  Serious: Yes (Hospitalization, Other)
  Sender: FDA-Public Use
  Company Number: BR-ABBVIE-15K-020-1428270-00

PATIENT
  Age: 24 Year
  Sex: Female
  Weight: 61 kg

DRUGS (5)
  1. HUMIRA [Suspect]
     Active Substance: ADALIMUMAB
     Indication: CROHN^S DISEASE
     Dosage: LOADING DOSE?WEEK 0
     Route: 058
     Dates: start: 20141104, end: 20141104
  2. HUMIRA [Suspect]
     Active Substance: ADALIMUMAB
     Dosage: WEEK 2
     Route: 058
     Dates: start: 201411, end: 201411
  3. HUMIRA [Suspect]
     Active Substance: ADALIMUMAB
     Route: 058
     Dates: end: 202011
  4. INFLIXIMAB [Concomitant]
     Active Substance: INFLIXIMAB
     Indication: PRODUCT USED FOR UNKNOWN INDICATION
  5. LUFTAL [Concomitant]
     Active Substance: DIMETHICONE
     Indication: PRODUCT USED FOR UNKNOWN INDICATION

REACTIONS (29)
  - Ketosis [Unknown]
  - Intestinal resection [Recovered/Resolved]
  - Pain [Recovered/Resolved]
  - Hospitalisation [Unknown]
  - Abscess intestinal [Recovered/Resolved]
  - Vomiting [Recovered/Resolved]
  - Hospitalisation [Recovered/Resolved]
  - Anal fistula [Recovered/Resolved]
  - COVID-19 [Unknown]
  - Hospitalisation [Recovered/Resolved]
  - Hepatic enzyme abnormal [Recovering/Resolving]
  - Weight decreased [Recovered/Resolved]
  - Enteritis [Unknown]
  - Crohn^s disease [Recovered/Resolved]
  - Hospitalisation [Unknown]
  - Malnutrition [Recovered/Resolved]
  - Liver function test increased [Not Recovered/Not Resolved]
  - Pyrexia [Unknown]
  - Pyrexia [Recovered/Resolved]
  - Intestinal obstruction [Recovered/Resolved]
  - Fatigue [Recovered/Resolved]
  - Inflammation [Not Recovered/Not Resolved]
  - Infection [Unknown]
  - Hospitalisation [Recovered/Resolved]
  - Anal inflammation [Unknown]
  - Therapeutic product effect incomplete [Unknown]
  - Gastrointestinal inflammation [Recovered/Resolved]
  - Weight increased [Recovered/Resolved]
  - C-reactive protein abnormal [Recovered/Resolved]

NARRATIVE: CASE EVENT DATE: 2015
